FAERS Safety Report 8521721-5 (Version None)
Quarter: 2012Q3

REPORT INFORMATION
  Report Type: 
  Country: None (occurrence: None)
  Receive Date: 20120719
  Receipt Date: 20120713
  Transmission Date: 20120928
  Serious: Yes (Hospitalization)
  Sender: FDA-Public Use
  Company Number: PHHY2012AU060810

PATIENT
  Age: 84 Year
  Sex: Male

DRUGS (4)
  1. OXALIPLATIN [Suspect]
     Indication: COLON CANCER METASTATIC
  2. CAPECITABINE [Concomitant]
     Indication: COLON CANCER METASTATIC
  3. FLUOROURACIL [Concomitant]
     Indication: COLON CANCER METASTATIC
  4. FOLINIC ACID [Concomitant]
     Indication: COLON CANCER METASTATIC

REACTIONS (9)
  - POLYNEUROPATHY [None]
  - MUSCULAR WEAKNESS [None]
  - HYPOREFLEXIA [None]
  - DYSPHAGIA [None]
  - BACTERAEMIA [None]
  - GUILLAIN-BARRE SYNDROME [None]
  - DYSPNOEA [None]
  - DIARRHOEA [None]
  - SPEECH DISORDER [None]
